FAERS Safety Report 23416593 (Version 1)
Quarter: 2024Q1

REPORT INFORMATION
  Report Type: Spontaneous
  Country: CA (occurrence: CA)
  Receive Date: 20240118
  Receipt Date: 20240118
  Transmission Date: 20240410
  Serious: Yes (Hospitalization, Other)
  Sender: FDA-Public Use
  Company Number: CA-FreseniusKabi-FK202400950

PATIENT
  Age: 5 Year
  Sex: Male

DRUGS (9)
  1. ETOPOSIDE [Suspect]
     Active Substance: ETOPOSIDE
     Indication: Burkitt^s lymphoma
     Dosage: FORM OF ADMIN. NOT SPECIFIED
     Route: 065
  2. CYCLOPHOSPHAMIDE [Suspect]
     Active Substance: CYCLOPHOSPHAMIDE
     Indication: Burkitt^s lymphoma
     Dosage: FORM OF ADMIN. NOT SPECIFIED?ROUTE: UNKNOWN
  3. CYTARABINE [Suspect]
     Active Substance: CYTARABINE
     Indication: Burkitt^s lymphoma
     Dosage: FORM OF ADMIN. NOT SPECIFIED?ROUTE: UNKNOWN
  4. DOXORUBICIN HYDROCHLORIDE [Suspect]
     Active Substance: DOXORUBICIN HYDROCHLORIDE
     Indication: Burkitt^s lymphoma
     Dosage: FORM OF ADMIN. INJECTION?ROUTE: UNKNOWN
  5. METHOTREXATE [Suspect]
     Active Substance: METHOTREXATE
     Indication: Burkitt^s lymphoma
     Dosage: FORM OF ADMIN. NOT SPECIFIED
  6. METHOTREXATE [Suspect]
     Active Substance: METHOTREXATE
     Dosage: FORM OF ADMIN. NOT SPECIFIED?ROUTE: UNKNOWN?2 REGIMENS
  7. PREDNISONE [Suspect]
     Active Substance: PREDNISONE
     Indication: Burkitt^s lymphoma
     Dosage: FORM OF ADMIN. NOT SPECIFIED?ROUTE: UNKNOWN
  8. RITUXIMAB [Suspect]
     Active Substance: RITUXIMAB
     Indication: Burkitt^s lymphoma
     Dosage: ROUTE: UNKNOWN
  9. VINCRISTINE SULFATE [Suspect]
     Active Substance: VINCRISTINE SULFATE
     Indication: Burkitt^s lymphoma
     Dosage: FORM OF ADMIN. NOT SPECIFIED?ROUTE: UNKNOWN

REACTIONS (3)
  - Febrile neutropenia [Unknown]
  - Hypogammaglobulinaemia [Unknown]
  - Viral upper respiratory tract infection [Unknown]
